FAERS Safety Report 6709119-3 (Version None)
Quarter: 2010Q2

REPORT INFORMATION
  Report Type: 
  Country: None (occurrence: None)
  Receive Date: 20100504
  Receipt Date: 20100423
  Transmission Date: 20101027
  Serious: Yes (Other)
  Sender: FDA-Public Use
  Company Number: PHHY2010DE26535

PATIENT
  Sex: Female

DRUGS (3)
  1. EMSELEX EXTENDED RELEASE [Suspect]
     Dosage: 7.5 MG, UNK
     Route: 048
  2. EMSELEX EXTENDED RELEASE [Suspect]
     Dosage: 15 MG, UNK
     Route: 048
  3. VERAPAMIL [Concomitant]

REACTIONS (2)
  - EYE DISORDER [None]
  - VISUAL ACUITY REDUCED [None]
